FAERS Safety Report 9329798 (Version 2)
Quarter: 2013Q3

REPORT INFORMATION
  Report Type: Report from Study
  Country: BR (occurrence: BR)
  Receive Date: 20130604
  Receipt Date: 20130805
  Transmission Date: 20140515
  Serious: Yes (Death, Hospitalization)
  Sender: FDA-Public Use
  Company Number: BR-ELI_LILLY_AND_COMPANY-BR201305007661

PATIENT
  Sex: Female
  Weight: 45 kg

DRUGS (7)
  1. TERIPARATIDE [Suspect]
     Indication: OSTEOPOROSIS
     Dosage: 20 UG, QD
     Route: 058
     Dates: start: 201301, end: 20130701
  2. PONDERA [Concomitant]
     Indication: DEPRESSION
     Dosage: 30 MG, QD
     Route: 065
  3. ENDOFOLIN [Concomitant]
     Dosage: 5 MG, QD
     Route: 065
  4. SINVASTATINA [Concomitant]
     Indication: BLOOD CHOLESTEROL INCREASED
     Dosage: 40 MG, QD
     Route: 065
  5. RIVOTRIL [Concomitant]
     Indication: SLEEP DISORDER
     Dosage: 0.5 MG, EACH EVENING
     Route: 065
  6. ACETYLSALICYLIC ACID [Concomitant]
     Indication: PERIPHERAL VASCULAR DISORDER
     Dosage: UNK
     Route: 065
  7. MANTIDAN [Concomitant]
     Dosage: UNK, UNKNOWN
     Route: 065

REACTIONS (2)
  - Joint injury [Fatal]
  - Arthritis infective [Fatal]
